FAERS Safety Report 5040067-3 (Version None)
Quarter: 2006Q2

REPORT INFORMATION
  Report Type: 
  Country: None (occurrence: None)
  Receive Date: 20060601
  Receipt Date: 20060105
  Transmission Date: 20061013
  Serious: No
  Sender: FDA-Public Use
  Company Number: 2006PV006618

PATIENT
  Age: 53 Year
  Sex: Female
  Weight: 102.9665 kg

DRUGS (1)
  1. BYETTA [Suspect]
     Indication: GLUCOSE TOLERANCE IMPAIRED
     Dosage: 5 MCG BID SC
     Route: 058
     Dates: start: 20060105

REACTIONS (4)
  - ERYTHEMA [None]
  - LACRIMATION INCREASED [None]
  - RHINORRHOEA [None]
  - THROAT IRRITATION [None]
